FAERS Safety Report 7572173-3 (Version None)
Quarter: 2011Q2

REPORT INFORMATION
  Report Type: 
  Country: None (occurrence: None)
  Receive Date: 20110624
  Receipt Date: 20110612
  Transmission Date: 20111010
  Serious: Yes (Death, Other)
  Sender: FDA-Public Use
  Company Number: PHHY2011ES54183

PATIENT
  Age: 21 Year
  Sex: Female

DRUGS (1)
  1. IMATINIB MESYLATE [Suspect]
     Indication: HYPEREOSINOPHILIC SYNDROME

REACTIONS (12)
  - RECTAL HAEMORRHAGE [None]
  - LARGE INTESTINE PERFORATION [None]
  - THROMBOCYTOPENIA [None]
  - NECROSIS [None]
  - NATURAL KILLER-CELL LYMPHOBLASTIC LYMPHOMA [None]
  - ANAEMIA [None]
  - HISTIOCYTOSIS HAEMATOPHAGIC [None]
  - HEPATOSPLENOMEGALY [None]
  - PULMONARY OEDEMA [None]
  - EOSINOPHILIA [None]
  - EPSTEIN-BARR VIRAEMIA [None]
  - DEATH [None]
